FAERS Safety Report 10529560 (Version 1)
Quarter: 2014Q4

REPORT INFORMATION
  Report Type: Spontaneous
  Country: US (occurrence: US)
  Receive Date: 20141021
  Receipt Date: 20141021
  Transmission Date: 20150528
  Serious: No
  Sender: FDA-Public Use
  Company Number: US-BIOGENIDEC-2014BI106562

PATIENT
  Age: 24 Year
  Sex: Male

DRUGS (1)
  1. TYSABRI [Suspect]
     Active Substance: NATALIZUMAB
     Indication: MULTIPLE SCLEROSIS
     Route: 042
     Dates: start: 20140211, end: 20140606

REACTIONS (5)
  - Feeling abnormal [Not Recovered/Not Resolved]
  - Loss of control of legs [Not Recovered/Not Resolved]
  - Multiple sclerosis relapse [Not Recovered/Not Resolved]
  - Musculoskeletal disorder [Not Recovered/Not Resolved]
  - VIIth nerve paralysis [Not Recovered/Not Resolved]

NARRATIVE: CASE EVENT DATE: 2014
